FAERS Safety Report 15732665 (Version 1)
Quarter: 2018Q4

REPORT INFORMATION
  Report Type: Spontaneous
  Country: US (occurrence: US)
  Receive Date: 20181217
  Receipt Date: 20181217
  Transmission Date: 20190205
  Serious: Yes (Death, Other)
  Sender: FDA-Public Use
  Company Number: US-BAYER-2018-233691

PATIENT
  Age: 88 Year
  Sex: Female
  Weight: 54.42 kg

DRUGS (1)
  1. ALEVE [Suspect]
     Active Substance: NAPROXEN SODIUM
     Dosage: UNK
     Route: 065

REACTIONS (4)
  - Hepatic cancer [Fatal]
  - Coma [Fatal]
  - Bladder cancer [Fatal]
  - Death [Fatal]

NARRATIVE: CASE EVENT DATE: 2007
